FAERS Safety Report 5351860-1 (Version None)
Quarter: 2007Q2

REPORT INFORMATION
  Report Type: 
  Country: None (occurrence: None)
  Receive Date: 20070521
  Receipt Date: 20070307
  Transmission Date: 20071010
  Serious: No
  Sender: FDA-Public Use
  Company Number: WAES 0703USA01142

PATIENT
  Age: 76 Year
  Sex: Female

DRUGS (3)
  1. JANUVIA [Suspect]
     Indication: DIABETES MELLITUS
     Dosage: UNK/UNK/PO
     Route: 048
     Dates: start: 20070305
  2. AVANDIA [Concomitant]
  3. [THERAPY UNSPECIFIED] [Concomitant]

REACTIONS (2)
  - NASOPHARYNGITIS [None]
  - UPPER RESPIRATORY TRACT INFECTION [None]
